FAERS Safety Report 5067264-5 (Version None)
Quarter: 2006Q3

REPORT INFORMATION
  Report Type: 
  Country: None (occurrence: None)
  Receive Date: 20060726
  Receipt Date: 20060713
  Transmission Date: 20061208
  Serious: Yes (Death)
  Sender: FDA-Public Use
  Company Number: 2006079200

PATIENT
  Age: 43 Year
  Sex: Male

DRUGS (5)
  1. VIAGRA [Suspect]
     Indication: ILL-DEFINED DISORDER
     Dosage: ORAL
     Route: 048
  2. ATACAND [Concomitant]
  3. ALLOPURINOL [Concomitant]
  4. SIMVASTATIN [Concomitant]
  5. ANTIBIOTICS [Concomitant]

REACTIONS (6)
  - CARDIAC DISORDER [None]
  - DIVERTICULUM INTESTINAL [None]
  - LARGE INTESTINE PERFORATION [None]
  - PULMONARY EMBOLISM [None]
  - RESPIRATORY DISORDER [None]
  - SUDDEN DEATH [None]
